FAERS Safety Report 13448078 (Version 2)
Quarter: 2017Q2

REPORT INFORMATION
  Report Type: Spontaneous
  Country: US (occurrence: US)
  Receive Date: 20170417
  Receipt Date: 20170508
  Transmission Date: 20170830
  Serious: Yes (Other)
  Sender: FDA-Public Use
  Company Number: US-MALLINCKRODT-T201701470

PATIENT
  Age: 70 Year
  Sex: Male

DRUGS (2)
  1. GABLOFEN [Suspect]
     Active Substance: BACLOFEN
     Indication: MUSCLE SPASTICITY
     Dosage: 1080.5 MCG/DAY
     Route: 037
  2. PHENYTOIN. [Concomitant]
     Active Substance: PHENYTOIN

REACTIONS (2)
  - Device issue [Unknown]
  - Seizure [Unknown]

NARRATIVE: CASE EVENT DATE: 201703
